FAERS Safety Report 5485467-2 (Version None)
Quarter: 2007Q4

REPORT INFORMATION
  Report Type: 
  Country: None (occurrence: None)
  Receive Date: 20071010
  Receipt Date: 20071010
  Transmission Date: 20080405
  Serious: Yes (Other)
  Sender: FDA-Public Use
  Company Number: None

PATIENT
  Sex: Female
  Weight: 112.9457 kg

DRUGS (1)
  1. PHENERGAN [Suspect]
     Indication: NAUSEA
     Dosage: ONE TIME  IM
     Route: 030
     Dates: start: 20020812

REACTIONS (12)
  - ABNORMAL BEHAVIOUR [None]
  - BURNING SENSATION [None]
  - DEHYDRATION [None]
  - DYSKINESIA [None]
  - HYPOAESTHESIA [None]
  - NAUSEA [None]
  - NEURALGIA [None]
  - OEDEMA PERIPHERAL [None]
  - PAIN IN EXTREMITY [None]
  - RESTLESS LEGS SYNDROME [None]
  - SCREAMING [None]
  - VOMITING [None]
